FAERS Safety Report 19499340 (Version 4)
Quarter: 2021Q4

REPORT INFORMATION
  Report Type: Spontaneous
  Country: US (occurrence: US)
  Receive Date: 20210706
  Receipt Date: 20211124
  Transmission Date: 20220303
  Serious: Yes (Other)
  Sender: FDA-Public Use
  Company Number: US-PFIZER INC-2021518170

PATIENT
  Age: 82 Year
  Sex: Female

DRUGS (1)
  1. IBRANCE [Suspect]
     Active Substance: PALBOCICLIB
     Indication: Breast cancer female
     Dosage: 100 MG
     Dates: start: 201907

REACTIONS (18)
  - Loss of consciousness [Unknown]
  - Pyrexia [Unknown]
  - Chills [Unknown]
  - Malaise [Unknown]
  - Urinary tract infection [Unknown]
  - Hyperhidrosis [Unknown]
  - Insomnia [Unknown]
  - Bone pain [Unknown]
  - Tremor [Unknown]
  - Vomiting [Unknown]
  - Alopecia [Unknown]
  - Anxiety [Unknown]
  - Pain in extremity [Unknown]
  - Abdominal pain upper [Unknown]
  - Hot flush [Unknown]
  - Trance [Unknown]
  - Illness [Unknown]
  - Depression [Unknown]
